FAERS Safety Report 4750018-4 (Version None)
Quarter: 2005Q3

REPORT INFORMATION
  Report Type: 
  Country: None (occurrence: None)
  Receive Date: 20050822
  Receipt Date: 20050812
  Transmission Date: 20060218
  Serious: Yes (Disabling)
  Sender: FDA-Public Use
  Company Number: US-MERCK-0508USA02391

PATIENT
  Sex: Male

DRUGS (1)
  1. VIOXX [Suspect]
     Route: 048
     Dates: start: 20000901, end: 20020201

REACTIONS (3)
  - ACUTE MYOCARDIAL INFARCTION [None]
  - ANHEDONIA [None]
  - POLYTRAUMATISM [None]
